FAERS Safety Report 7224230-9 (Version None)
Quarter: 2011Q1

REPORT INFORMATION
  Report Type: 
  Country: None (occurrence: None)
  Receive Date: 20110106
  Receipt Date: 20110106
  Transmission Date: 20110831
  Serious: Yes (Life-Threatening, Hospitalization, Disabling)
  Sender: FDA-Public Use
  Company Number: None

PATIENT
  Age: 78 Year
  Sex: Female
  Weight: 35 kg

DRUGS (3)
  1. ENULOSE [Suspect]
     Indication: FOREIGN BODY
     Dosage: 10 MG/15 ML 20 MG DAILY TO PASS STRIN PER ORAL
     Route: 048
     Dates: start: 20101205
  2. PHENERGAN [Suspect]
     Dates: start: 20101217
  3. ENULOSE [Suspect]
     Indication: FOREIGN BODY
     Dosage: 10 MG/15 ML 20 MG DAILY TO PASS STRIN PER ORAL
     Route: 048
     Dates: start: 20101204

REACTIONS (4)
  - URINARY TRACT INFECTION [None]
  - GASTROENTERITIS [None]
  - ILEUS [None]
  - PNEUMONIA ASPIRATION [None]
